FAERS Safety Report 8428682-8 (Version None)
Quarter: 2012Q2

REPORT INFORMATION
  Report Type: 
  Country: None (occurrence: None)
  Receive Date: 20120606
  Receipt Date: 20120529
  Transmission Date: 20120825
  Serious: Yes (Hospitalization)
  Sender: FDA-Public Use
  Company Number: TCI2012A02656

PATIENT
  Age: 75 Year
  Sex: Female

DRUGS (6)
  1. ACTOS [Suspect]
     Indication: TYPE 2 DIABETES MELLITUS
     Dosage: 15 MG (15 MG, 1 D), PER ORAL
     Route: 048
     Dates: start: 20090404, end: 20120409
  2. CALCIUM CHANNEL BLOCKERS [Concomitant]
  3. ANGIOTENSIN II ANTAGONISTS [Concomitant]
  4. HMG COA REDUCTASE INHIBITORS [Concomitant]
  5. ORAL ANITDIABETES [Concomitant]
  6. DRUG USED IN DIABETES [Concomitant]

REACTIONS (1)
  - CEREBRAL HAEMORRHAGE [None]
